FAERS Safety Report 6279450-7 (Version None)
Quarter: 2009Q3

REPORT INFORMATION
  Report Type: 
  Country: None (occurrence: None)
  Receive Date: 20090723
  Receipt Date: 20090710
  Transmission Date: 20100115
  Serious: Yes (Other)
  Sender: FDA-Public Use
  Company Number: FR-ELI_LILLY_AND_COMPANY-FR200907004176

PATIENT
  Sex: Female

DRUGS (1)
  1. RALOXIFENE HYDROCHLORIDE [Suspect]
     Dosage: UNK, UNKNOWN
     Route: 065

REACTIONS (1)
  - BREAST CANCER [None]
